FAERS Safety Report 22180351 (Version 2)
Quarter: 2023Q2

REPORT INFORMATION
  Report Type: Spontaneous
  Country: US (occurrence: US)
  Receive Date: 20230406
  Receipt Date: 20230426
  Transmission Date: 20230721
  Serious: No
  Sender: FDA-Public Use
  Company Number: US-AMGEN-USASP2023057866

PATIENT
  Age: 49 Year
  Sex: Male

DRUGS (3)
  1. KYPROLIS [Suspect]
     Active Substance: CARFILZOMIB
     Indication: Plasma cell myeloma
     Dosage: 72 MILLIGRAM, EVERY 28 DAYS, 2 VIALS OF 10 MG KYPROLIS
     Route: 042
     Dates: start: 20220812
  2. KYPROLIS [Suspect]
     Active Substance: CARFILZOMIB
     Dosage: 72 MILLIGRAM, EVERY 28 DAYS, 60 MG KYPROLIS
     Route: 042
  3. DARZALEX [Concomitant]
     Active Substance: DARATUMUMAB
     Indication: Plasma cell myeloma
     Dosage: 1800 MILLIGRAM
     Route: 065
     Dates: start: 20220812

REACTIONS (1)
  - Blood triglycerides increased [Recovering/Resolving]

NARRATIVE: CASE EVENT DATE: 20230323
